FAERS Safety Report 9681215 (Version 1)
Quarter: 2013Q4

REPORT INFORMATION
  Report Type: Spontaneous
  Country: CA (occurrence: CA)
  Receive Date: 20131111
  Receipt Date: 20131111
  Transmission Date: 20140711
  Serious: Yes (Death)
  Sender: FDA-Public Use
  Company Number: CA-ASTRAZENECA-2013SE82130

PATIENT
  Age: 40 Year
  Sex: Male

DRUGS (18)
  1. ATENOLOL [Suspect]
     Route: 048
  2. SEROQUEL [Interacting]
     Route: 048
  3. CAMPRAL [Interacting]
     Route: 065
  4. CREATINE [Interacting]
     Route: 065
  5. EPHEDRINE HYDROCHLORIDE [Interacting]
     Route: 065
  6. ETHANOL [Interacting]
     Route: 065
  7. HOMEOPATHICS [Interacting]
     Route: 065
  8. HYDRASHRED [Interacting]
     Route: 065
  9. HYLANDS TEETHING TABLETS [Interacting]
     Route: 065
  10. PANTOPRAZOLE [Interacting]
     Route: 065
  11. LITHIUM CARBONATE [Interacting]
     Route: 065
  12. RAPID LEAN [Interacting]
     Route: 065
  13. RIPPED FREAK [Interacting]
     Route: 065
  14. SUPER VITA VIM [Interacting]
     Route: 065
  15. VITAMIN B1 [Interacting]
     Route: 065
  16. VITAMIN D [Interacting]
     Route: 065
  17. WELLBUTRIN XL [Interacting]
     Route: 065
  18. XENADRINE EFX [Interacting]
     Route: 065

REACTIONS (3)
  - Drug interaction [Fatal]
  - Toxicity to various agents [Fatal]
  - Antipsychotic drug level above therapeutic [Fatal]
